FAERS Safety Report 5115509-5 (Version None)
Quarter: 2006Q3

REPORT INFORMATION
  Report Type: 
  Country: None (occurrence: None)
  Receive Date: 20060927
  Receipt Date: 20060918
  Transmission Date: 20061208
  Serious: Yes (Disabling, Other)
  Sender: FDA-Public Use
  Company Number: 2006AC01704

PATIENT
  Age: 848 Month
  Sex: Male
  Weight: 130 kg

DRUGS (5)
  1. CASODEX [Suspect]
     Indication: PROSTATE CANCER
     Route: 048
     Dates: start: 19950101, end: 20051001
  2. LUCRIN [Suspect]
     Indication: PROSTATE CANCER
     Dates: start: 19950101, end: 20051001
  3. CARBASALAAT CALCIUM CARDIO [Concomitant]
     Dates: start: 20040101
  4. ENALAPRIL MALEAS [Concomitant]
     Dates: start: 20040101
  5. PRAVASTATINUM NATRICUM [Concomitant]
     Dates: start: 20040101

REACTIONS (2)
  - ARTHRALGIA [None]
  - POLYNEUROPATHY [None]
